FAERS Safety Report 8446960-3 (Version None)
Quarter: 2012Q2

REPORT INFORMATION
  Report Type: 
  Country: None (occurrence: None)
  Receive Date: 20120613
  Receipt Date: 20120613
  Transmission Date: 20120825
  Serious: Yes (Other)
  Sender: FDA-Public Use
  Company Number: None

PATIENT
  Age: 57 Year
  Sex: Female

DRUGS (6)
  1. HUMALOG [Concomitant]
  2. HYDROCHLOROT [Concomitant]
  3. OMEPRAZOLE [Concomitant]
  4. LEVOTHYROXINE SODIUM [Concomitant]
  5. SIMBASTATIN [Concomitant]
  6. LISINOPRIL [Suspect]
     Indication: HYPERTENSION
     Dosage: 2.5MG ONCE A DAY PO
     Route: 048
     Dates: start: 20111219, end: 20120611

REACTIONS (1)
  - COUGH [None]
